FAERS Safety Report 4837635-8 (Version None)
Quarter: 2005Q4

REPORT INFORMATION
  Report Type: 
  Country: None (occurrence: None)
  Receive Date: 20051122
  Receipt Date: 20051110
  Transmission Date: 20060501
  Serious: Yes (Death)
  Sender: FDA-Public Use
  Company Number: JP_051007889

PATIENT
  Age: 17 Year
  Sex: Male

DRUGS (5)
  1. ZYPREXA [Suspect]
     Indication: PERSONALITY DISORDER
     Dosage: 5 MG, DAILY (1/D), ORAL
     Route: 048
     Dates: start: 20050809
  2. DEPAS (ETIZOLAM) [Concomitant]
  3. SEPAZON (CLOXAZOLAM) [Concomitant]
  4. FLUVOXAMINE MALEATE [Concomitant]
  5. ROHYPNOL   /NET/(FLUNITRAZEPAM) [Concomitant]

REACTIONS (5)
  - ANXIETY [None]
  - APATHY [None]
  - COMPLETED SUICIDE [None]
  - DEPRESSIVE SYMPTOM [None]
  - SUICIDAL IDEATION [None]
